FAERS Safety Report 4701477-4 (Version None)
Quarter: 2005Q2

REPORT INFORMATION
  Report Type: 
  Country: None (occurrence: None)
  Receive Date: 20050628
  Receipt Date: 20050620
  Transmission Date: 20051028
  Serious: Yes (Other)
  Sender: FDA-Public Use
  Company Number: GB-ROCHE-408276

PATIENT
  Age: 14 Year
  Sex: Male

DRUGS (1)
  1. ROACCUTANE [Suspect]
     Indication: ACNE
     Route: 048
     Dates: start: 20050330, end: 20050427

REACTIONS (3)
  - DEPRESSED MOOD [None]
  - DEPRESSION [None]
  - MORBID THOUGHTS [None]
